FAERS Safety Report 10575892 (Version 1)
Quarter: 2014Q4

REPORT INFORMATION
  Report Type: Spontaneous
  Country: FR (occurrence: FR)
  Receive Date: 20141111
  Receipt Date: 20141111
  Transmission Date: 20150529
  Serious: Yes (Hospitalization, Other)
  Sender: FDA-Public Use
  Company Number: FR-ASTRAZENECA-2014SE83806

PATIENT
  Age: 61 Year
  Sex: Male

DRUGS (9)
  1. DIFFU K [Concomitant]
     Active Substance: POTASSIUM CHLORIDE
  2. GLICLAZIDE [Concomitant]
     Active Substance: GLICLAZIDE
  3. VITAMIN B1 B6 BAYER [Concomitant]
  4. BISOPROLOL [Concomitant]
     Active Substance: BISOPROLOL
  5. LASILIX [Concomitant]
     Active Substance: FUROSEMIDE
  6. TRIATEC [Concomitant]
     Active Substance: RAMIPRIL
  7. SPECIAFOLDINE [Concomitant]
     Active Substance: FOLIC ACID
  8. INEXIUM [Suspect]
     Active Substance: ESOMEPRAZOLE
     Route: 048
     Dates: end: 201308
  9. ALDACTONE [Concomitant]
     Active Substance: SPIRONOLACTONE

REACTIONS (4)
  - Bone marrow toxicity [Unknown]
  - Acute kidney injury [Unknown]
  - Thrombocytopenia [Recovered/Resolved]
  - Anaemia [Recovering/Resolving]

NARRATIVE: CASE EVENT DATE: 201308
